FAERS Safety Report 7231387-2 (Version None)
Quarter: 2011Q1

REPORT INFORMATION
  Report Type: 
  Country: None (occurrence: None)
  Receive Date: 20110118
  Receipt Date: 20110107
  Transmission Date: 20110831
  Serious: Yes (Hospitalization)
  Sender: FDA-Public Use
  Company Number: US-MERCK-1008USA00774

PATIENT
  Age: 65 Year
  Sex: Female

DRUGS (5)
  1. FOSAMAX [Suspect]
     Route: 048
     Dates: start: 20010116, end: 20011001
  2. ACTONEL [Suspect]
     Indication: OSTEOPOROSIS
     Route: 048
     Dates: start: 20040101, end: 20100101
  3. LEXAPRO [Concomitant]
     Indication: DEPRESSION
     Route: 065
  4. LEXAPRO [Concomitant]
     Indication: ANXIETY
     Route: 065
  5. FOSAMAX [Suspect]
     Indication: OSTEOPOROSIS
     Route: 048
     Dates: start: 20011001, end: 20040101

REACTIONS (38)
  - ANAEMIA POSTOPERATIVE [None]
  - EMPHYSEMA [None]
  - UTERINE CERVICAL SQUAMOUS METAPLASIA [None]
  - LUMBAR RADICULOPATHY [None]
  - LOW TURNOVER OSTEOPATHY [None]
  - FIBROCYSTIC BREAST DISEASE [None]
  - DEPRESSION [None]
  - HYPERSENSITIVITY [None]
  - HERPES ZOSTER [None]
  - ARTHROPATHY [None]
  - FEMORAL NECK FRACTURE [None]
  - ANXIETY [None]
  - AORTIC ARTERIOSCLEROSIS [None]
  - HEADACHE [None]
  - CERVICOBRACHIAL SYNDROME [None]
  - VITAMIN D DEFICIENCY [None]
  - BACK PAIN [None]
  - OSTEOARTHRITIS [None]
  - SLEEP DISORDER [None]
  - RENAL PAIN [None]
  - SPINAL OSTEOARTHRITIS [None]
  - CHEST PAIN [None]
  - CHRONIC OBSTRUCTIVE PULMONARY DISEASE [None]
  - ROAD TRAFFIC ACCIDENT [None]
  - SCOLIOSIS [None]
  - NIGHT SWEATS [None]
  - TYPE 2 DIABETES MELLITUS [None]
  - PATELLOFEMORAL PAIN SYNDROME [None]
  - FALL [None]
  - PNEUMONIA [None]
  - PAIN IN EXTREMITY [None]
  - ARTHRALGIA [None]
  - ROTATOR CUFF SYNDROME [None]
  - CONSTIPATION [None]
  - JOINT INJURY [None]
  - HYPERLIPIDAEMIA [None]
  - FIBROSIS [None]
  - WEIGHT DECREASED [None]
